FAERS Safety Report 4387420-9 (Version None)
Quarter: 2004Q2

REPORT INFORMATION
  Report Type: 
  Country: None (occurrence: None)
  Receive Date: 20040630
  Receipt Date: 20040426
  Transmission Date: 20050107
  Serious: No
  Sender: FDA-Public Use
  Company Number: US-GLAXOSMITHKLINE-A0508435A

PATIENT
  Age: 63 Year
  Sex: Female

DRUGS (6)
  1. ADVAIR HFA [Suspect]
     Indication: ASTHMA
     Route: 055
  2. SINGULAIR [Concomitant]
  3. ZOCOR [Concomitant]
  4. MIACALCIN [Concomitant]
     Route: 045
  5. LASIX [Concomitant]
  6. PREVACID [Concomitant]

REACTIONS (1)
  - DYSPNOEA [None]
